FAERS Safety Report 23157296 (Version 1)
Quarter: 2023Q4

REPORT INFORMATION
  Report Type: Spontaneous
  Country: NO (occurrence: NO)
  Receive Date: 20231108
  Receipt Date: 20231108
  Transmission Date: 20240109
  Serious: Yes (Life-Threatening, Hospitalization)
  Sender: FDA-Public Use
  Company Number: None

PATIENT
  Age: 54 Year
  Sex: Female

DRUGS (9)
  1. NASONEX [Concomitant]
     Active Substance: MOMETASONE FUROATE
     Dosage: UNK
  2. FLUTICASONE FUROATE\VILANTEROL TRIFENATATE [Concomitant]
     Active Substance: FLUTICASONE FUROATE\VILANTEROL TRIFENATATE
     Dosage: UNK
  3. VITAMIN B12 DEPOT ORIFARM [Concomitant]
     Dosage: UNK
  4. LEVOTHYROXINE SODIUM [Concomitant]
     Active Substance: LEVOTHYROXINE SODIUM
     Dosage: 100 UG
  5. ALBUTEROL SULFATE [Concomitant]
     Active Substance: ALBUTEROL SULFATE
     Dosage: UNK
  6. PANTOPRAZOLE SODIUM [Concomitant]
     Active Substance: PANTOPRAZOLE SODIUM
     Dosage: UNK
  7. OZEMPIC [Suspect]
     Active Substance: SEMAGLUTIDE
     Indication: Postprandial hypoglycaemia
  8. OZEMPIC [Suspect]
     Active Substance: SEMAGLUTIDE
     Indication: Off label use
  9. OZEMPIC [Suspect]
     Active Substance: SEMAGLUTIDE
     Indication: Dumping syndrome
     Dosage: 1 MG
     Route: 058
     Dates: start: 20220909, end: 20230218

REACTIONS (7)
  - Vomiting [Recovering/Resolving]
  - Off label use [Recovering/Resolving]
  - Pulmonary embolism [Recovering/Resolving]
  - Weight decreased [Recovering/Resolving]
  - Dehydration [Recovering/Resolving]
  - Nausea [Recovering/Resolving]
  - Decreased appetite [Recovering/Resolving]

NARRATIVE: CASE EVENT DATE: 20220901
